FAERS Safety Report 17010402 (Version 1)
Quarter: 2019Q4

REPORT INFORMATION
  Report Type: Spontaneous
  Country: US (occurrence: US)
  Receive Date: 20191108
  Receipt Date: 20191108
  Transmission Date: 20200122
  Serious: No
  Sender: FDA-Public Use
  Company Number: US-009507513-1911USA000289

PATIENT
  Age: 55 Year
  Sex: Male

DRUGS (1)
  1. CUBICIN [Suspect]
     Active Substance: DAPTOMYCIN
     Indication: SEPTIC ARTHRITIS STAPHYLOCOCCAL

REACTIONS (1)
  - Product use in unapproved indication [Unknown]
